FAERS Safety Report 4872659-6 (Version None)
Quarter: 2006Q1

REPORT INFORMATION
  Report Type: 
  Country: None (occurrence: None)
  Receive Date: 20060103
  Receipt Date: 20051221
  Transmission Date: 20060701
  Serious: Yes (Hospitalization)
  Sender: FDA-Public Use
  Company Number: GBR-2005-0002033

PATIENT
  Age: 53 Year
  Sex: Male

DRUGS (4)
  1. TRAMADOL HCL [Suspect]
     Indication: OSTEOARTHRITIS
     Dosage: SEE IMAGE
  2. MORPHINE SULFATE [Suspect]
     Indication: PROCEDURAL PAIN
     Dosage: PARENTERAL
     Route: 051
  3. PARACETAMOL [Concomitant]
  4. OMEPRAZOLE [Concomitant]

REACTIONS (12)
  - DRUG WITHDRAWAL SYNDROME [None]
  - DYSKINESIA [None]
  - DYSPNOEA [None]
  - ELECTROCARDIOGRAM ST SEGMENT DEPRESSION [None]
  - EMOTIONAL DISTRESS [None]
  - HYPERHIDROSIS [None]
  - HYPERTONIA [None]
  - MUSCLE RIGIDITY [None]
  - POST PROCEDURAL COMPLICATION [None]
  - RESPIRATORY ALKALOSIS [None]
  - TACHYCARDIA [None]
  - VASOCONSTRICTION [None]
